FAERS Safety Report 25182138 (Version 1)
Quarter: 2025Q2

REPORT INFORMATION
  Report Type: Spontaneous
  Country: PT (occurrence: PT)
  Receive Date: 20250410
  Receipt Date: 20250410
  Transmission Date: 20250717
  Serious: Yes (Other)
  Sender: AUROBINDO
  Company Number: PT-EMA-DD-20190104-sandevhp-154235

PATIENT
  Age: 37 Year
  Sex: Male
  Weight: 118 kg

DRUGS (9)
  1. SERTRALINE [Suspect]
     Active Substance: SERTRALINE HYDROCHLORIDE
     Indication: Anxiety disorder
     Route: 048
     Dates: start: 201711
  2. QUETIAPINE [Suspect]
     Active Substance: QUETIAPINE
     Indication: Sleep disorder
     Dosage: 300 MILLIGRAM, ONCE A DAY (300 MG, 1X/DAY)
     Route: 048
  3. QUETIAPINE [Suspect]
     Active Substance: QUETIAPINE
     Route: 048
     Dates: start: 201711
  4. VALPROATE SODIUM [Suspect]
     Active Substance: VALPROATE SODIUM
     Indication: Product used for unknown indication
     Dosage: 1000 MILLIGRAM, ONCE A DAY (1000 MG, QD)
     Route: 065
  5. VALPROATE SODIUM [Suspect]
     Active Substance: VALPROATE SODIUM
     Route: 065
  6. ETHYL LOFLAZEPATE [Suspect]
     Active Substance: ETHYL LOFLAZEPATE
     Indication: Anxiety
     Route: 048
  7. ETHYL LOFLAZEPATE [Suspect]
     Active Substance: ETHYL LOFLAZEPATE
     Indication: Sleep disorder
  8. FOLIC ACID [Concomitant]
     Active Substance: FOLIC ACID
     Indication: Product used for unknown indication
     Route: 065
  9. CYANOCOBALAMIN [Concomitant]
     Active Substance: CYANOCOBALAMIN
     Indication: Product used for unknown indication
     Route: 065

REACTIONS (17)
  - Anxiety [Recovered/Resolved]
  - Bipolar disorder [Recovered/Resolved]
  - Condition aggravated [Recovered/Resolved]
  - Insomnia [Recovered/Resolved]
  - Irritability [Recovered/Resolved]
  - Mood swings [Recovered/Resolved]
  - Decreased appetite [Recovered/Resolved]
  - Pressure of speech [Recovered/Resolved]
  - Disturbance in attention [Recovered/Resolved]
  - Amnesia [Recovered/Resolved]
  - Patient isolation [Unknown]
  - Weight decreased [Recovered/Resolved]
  - Asthenia [Recovered/Resolved]
  - Aggression [Recovered/Resolved]
  - Feeling abnormal [Recovered/Resolved]
  - Dysphoria [Recovered/Resolved]
  - Anhedonia [Recovered/Resolved]

NARRATIVE: CASE EVENT DATE: 20180501
